FAERS Safety Report 5286875-5 (Version None)
Quarter: 2007Q1

REPORT INFORMATION
  Report Type: 
  Country: None (occurrence: None)
  Receive Date: 20070329
  Receipt Date: 20070321
  Transmission Date: 20070707
  Serious: Yes (Other)
  Sender: FDA-Public Use
  Company Number: 238649

PATIENT
  Age: 80 Year
  Sex: Female

DRUGS (6)
  1. LUCENTIS [Suspect]
     Indication: DRUG USE FOR UNKNOWN INDICATION
     Dosage: INTRAVITREAL
     Dates: start: 20070111
  2. CARDIZEM [Concomitant]
  3. COZAAR [Concomitant]
  4. LASIX [Concomitant]
  5. LAMICTAL [Concomitant]
  6. CYMBALTA [Concomitant]

REACTIONS (7)
  - BRONCHITIS [None]
  - HYPERTENSION [None]
  - NEPHROLITHIASIS [None]
  - PHARYNGOLARYNGEAL PAIN [None]
  - SINUSITIS [None]
  - URINARY TRACT INFECTION [None]
  - VERTIGO [None]
